FAERS Safety Report 6174027-6 (Version None)
Quarter: 2009Q2

REPORT INFORMATION
  Report Type: 
  Country: None (occurrence: None)
  Receive Date: 20090430
  Receipt Date: 20080215
  Transmission Date: 20091009
  Serious: No
  Sender: FDA-Public Use
  Company Number: US-ASTRAZENECA-2008UW03132

PATIENT
  Age: 83 Year
  Sex: Female
  Weight: 54.4 kg

DRUGS (5)
  1. NEXIUM [Suspect]
     Indication: HIATUS HERNIA
     Route: 048
     Dates: start: 20080209
  2. LISINOPRIL [Concomitant]
     Route: 048
  3. ACTOS [Concomitant]
  4. SIMVASTATIN [Concomitant]
  5. FEXOFENADINE [Concomitant]

REACTIONS (3)
  - ABDOMINAL PAIN UPPER [None]
  - DYSPEPSIA [None]
  - ILL-DEFINED DISORDER [None]
